FAERS Safety Report 6824265-1 (Version None)
Quarter: 2010Q3

REPORT INFORMATION
  Report Type: 
  Country: None (occurrence: None)
  Receive Date: 20100708
  Receipt Date: 20061017
  Transmission Date: 20110219
  Serious: No
  Sender: FDA-Public Use
  Company Number: US-PFIZER INC-2006127723

PATIENT
  Sex: Female
  Weight: 63.5 kg

DRUGS (7)
  1. CHANTIX [Suspect]
     Indication: SMOKING CESSATION THERAPY
     Dates: start: 20060101
  2. NEURONTIN [Concomitant]
  3. AMANTADINE HCL [Concomitant]
  4. REBIF [Concomitant]
  5. SYNTHROID [Concomitant]
  6. PROZAC [Concomitant]
  7. ARICEPT [Concomitant]

REACTIONS (3)
  - FOOD CRAVING [None]
  - NAUSEA [None]
  - WEIGHT INCREASED [None]
